FAERS Safety Report 8514461-X (Version None)
Quarter: 2012Q2

REPORT INFORMATION
  Report Type: 
  Country: None (occurrence: None)
  Receive Date: 20120406
  Receipt Date: 20100616
  Transmission Date: 20120825
  Serious: Yes (Hospitalization)
  Sender: FDA-Public Use
  Company Number: PHHY2010US39561

PATIENT
  Age: 75 Year
  Sex: Female

DRUGS (1)
  1. TASIGNA [Suspect]
     Indication: CHRONIC MYELOID LEUKAEMIA
     Dosage: 400 MG, TWICE DAILY, ORAL
     Route: 048
     Dates: start: 20080202

REACTIONS (1)
  - HAEMOGLOBIN DECREASED [None]
